FAERS Safety Report 25721392 (Version 1)
Quarter: 2025Q3

REPORT INFORMATION
  Report Type: Spontaneous
  Country: US (occurrence: US)
  Receive Date: 20250825
  Receipt Date: 20250825
  Transmission Date: 20251020
  Serious: Yes (Hospitalization)
  Sender: CHEPLAPHARM
  Company Number: None

PATIENT
  Age: 21 Year
  Sex: Female

DRUGS (10)
  1. OLANZAPINE [Suspect]
     Active Substance: OLANZAPINE
     Indication: Schizophrenia
     Route: 048
  2. OLANZAPINE [Suspect]
     Active Substance: OLANZAPINE
     Indication: Schizophrenia
     Dosage: LONG-ACTING INJECTABLE
  3. ARIPIPRAZOLE [Suspect]
     Active Substance: ARIPIPRAZOLE
     Indication: Schizophrenia
     Dosage: DAILY DOSE: 30 MILLIGRAM
     Route: 048
  4. CLOZAPINE [Suspect]
     Active Substance: CLOZAPINE
     Indication: Schizophrenia
     Dosage: DAILY DOSE: 200 MILLIGRAM
  5. CLOZAPINE [Suspect]
     Active Substance: CLOZAPINE
     Indication: Oculogyric crisis
     Dosage: DAILY DOSE: 200 MILLIGRAM
  6. CLOZAPINE [Suspect]
     Active Substance: CLOZAPINE
     Indication: Schizophrenia
  7. CLOZAPINE [Suspect]
     Active Substance: CLOZAPINE
     Indication: Oculogyric crisis
  8. CLOZAPINE [Suspect]
     Active Substance: CLOZAPINE
     Indication: Schizophrenia
     Dosage: DAILY DOSE: 250 MILLIGRAM
  9. CLOZAPINE [Suspect]
     Active Substance: CLOZAPINE
     Indication: Oculogyric crisis
     Dosage: DAILY DOSE: 250 MILLIGRAM
  10. LAMOTRIGINE [Concomitant]
     Active Substance: LAMOTRIGINE
     Indication: Oculogyric crisis

REACTIONS (2)
  - Psychotic disorder [Recovering/Resolving]
  - Weight increased [Unknown]
